FAERS Safety Report 19189107 (Version 1)
Quarter: 2021Q2

REPORT INFORMATION
  Report Type: Spontaneous
  Country: US (occurrence: US)
  Receive Date: 20210428
  Receipt Date: 20210428
  Transmission Date: 20210717
  Serious: No
  Sender: FDA-Public Use
  Company Number: US-ULTRAGENYX PHARMACEUTICAL INC.-US-UGNX-21-00022

PATIENT
  Age: 7 Year
  Sex: Female

DRUGS (1)
  1. DOJOLVI [Suspect]
     Active Substance: TRIHEPTANOIN
     Indication: FATTY ACID OXIDATION DISORDER
     Dates: start: 20210129

REACTIONS (7)
  - Pain in extremity [Unknown]
  - Pain [Unknown]
  - Muscular weakness [Recovered/Resolved]
  - Malaise [Unknown]
  - Body temperature abnormal [Unknown]
  - Abdominal pain upper [Unknown]
  - Asthenia [Recovered/Resolved]

NARRATIVE: CASE EVENT DATE: 20210211
